FAERS Safety Report 24178750 (Version 1)
Quarter: 2024Q3

REPORT INFORMATION
  Report Type: Spontaneous
  Country: FR (occurrence: FR)
  Receive Date: 20240806
  Receipt Date: 20240806
  Transmission Date: 20241017
  Serious: Yes (Other)
  Sender: SANDOZ
  Company Number: None

PATIENT
  Age: 70 Year
  Sex: Female

DRUGS (6)
  1. CYCLOPHOSPHAMIDE [Suspect]
     Active Substance: CYCLOPHOSPHAMIDE
     Indication: Infection prophylaxis
     Dosage: 750.000MG/M2
     Route: 042
     Dates: start: 20240607, end: 20240607
  2. FILGRASTIM [Suspect]
     Active Substance: FILGRASTIM
     Indication: Chemotherapy toxicity attenuation
     Dosage: 300.000UG QD (STRENGTH: 30 MU/0,5 ML)
     Route: 058
     Dates: start: 20240614, end: 20240618
  3. BACTRIM [Concomitant]
     Active Substance: SULFAMETHOXAZOLE\TRIMETHOPRIM
     Indication: Infection prophylaxis
     Dosage: 3.000DF (FORMULATION: COMPRESSED)
     Route: 048
     Dates: start: 20240610
  4. DOXORUBICIN [Concomitant]
     Active Substance: DOXORUBICIN
     Indication: Diffuse large B-cell lymphoma
     Dosage: 50.000MG/M2
     Route: 042
     Dates: start: 20240607, end: 20240607
  5. RITUXIMAB [Concomitant]
     Active Substance: RITUXIMAB
     Indication: Diffuse large B-cell lymphoma
     Dosage: 375.000MG/M2
     Route: 042
     Dates: start: 20240607, end: 20240608
  6. VINCRISTINE [Concomitant]
     Active Substance: VINCRISTINE
     Indication: Diffuse large B-cell lymphoma
     Dosage: 2.000MG
     Route: 042
     Dates: start: 20240607, end: 20240607

REACTIONS (1)
  - Neutrophilic dermatosis [Recovered/Resolved]

NARRATIVE: CASE EVENT DATE: 20240623
